FAERS Safety Report 11592892 (Version 1)
Quarter: 2015Q4

REPORT INFORMATION
  Report Type: Spontaneous
  Country: US (occurrence: US)
  Receive Date: 20151005
  Receipt Date: 20151005
  Transmission Date: 20160304
  Serious: No
  Sender: FDA-Public Use
  Company Number: US-TEVA-596694ACC

PATIENT
  Age: 29 Year
  Sex: Female
  Weight: 67.19 kg

DRUGS (3)
  1. PARAGARD T 380A [Suspect]
     Active Substance: COPPER
     Indication: CONTRACEPTION
     Route: 015
     Dates: start: 20150914
  2. MEDICAL MARIJUANA [Concomitant]
     Active Substance: CANNABIS SATIVA SUBSP. INDICA TOP
     Indication: ABDOMINAL PAIN UPPER
  3. MEDICAL MARIJUANA [Concomitant]
     Active Substance: CANNABIS SATIVA SUBSP. INDICA TOP
     Indication: BACK PAIN

REACTIONS (4)
  - Back pain [Not Recovered/Not Resolved]
  - Vaginal discharge [Not Recovered/Not Resolved]
  - Vaginal haemorrhage [Recovered/Resolved]
  - Dysmenorrhoea [Not Recovered/Not Resolved]

NARRATIVE: CASE EVENT DATE: 20150914
